FAERS Safety Report 4438646-7 (Version None)
Quarter: 2004Q3

REPORT INFORMATION
  Report Type: 
  Country: None (occurrence: None)
  Receive Date: 20040728
  Receipt Date: 20040301
  Transmission Date: 20050211
  Serious: No
  Sender: FDA-Public Use
  Company Number: USA040360545

PATIENT
  Age: 46 Year
  Sex: Male

DRUGS (4)
  1. STRATTERA [Suspect]
     Indication: ATTENTION DEFICIT/HYPERACTIVITY DISORDER
     Dosage: 60 MG DAY
  2. CYTOMEL [Concomitant]
  3. BUSPAR [Concomitant]
  4. CATAPRES-TTS-1 [Concomitant]

REACTIONS (2)
  - ATTENTION DEFICIT/HYPERACTIVITY DISORDER [None]
  - HEADACHE [None]
